FAERS Safety Report 7937914-1 (Version None)
Quarter: 2011Q4

REPORT INFORMATION
  Report Type: 
  Country: None (occurrence: None)
  Receive Date: 20111123
  Receipt Date: 20111118
  Transmission Date: 20120403
  Serious: Yes (Death, Hospitalization)
  Sender: FDA-Public Use
  Company Number: US-BAYER-201036051NA

PATIENT
  Age: 50 Year
  Sex: Female
  Weight: 129.93 kg

DRUGS (1)
  1. YAZ [Suspect]
     Dosage: UNK
     Route: 048
     Dates: start: 20061005, end: 20080101

REACTIONS (1)
  - PULMONARY EMBOLISM [None]
